FAERS Safety Report 12899849 (Version 3)
Quarter: 2017Q1

REPORT INFORMATION
  Report Type: Spontaneous
  Country: US (occurrence: US)
  Receive Date: 20161101
  Receipt Date: 20170110
  Transmission Date: 20170428
  Serious: Yes (Hospitalization)
  Sender: FDA-Public Use
  Company Number: US-PFIZER INC-2015427606

PATIENT
  Age: 64 Year
  Sex: Female
  Weight: 61.22 kg

DRUGS (10)
  1. DELTASONE [Concomitant]
     Active Substance: PREDNISONE
     Dosage: 5 MG, UNK
  2. MOTRIN [Concomitant]
     Active Substance: IBUPROFEN
     Dosage: 200 MG, 1X/DAY (AS NEEDED)
     Route: 048
  3. DELTASONE [Concomitant]
     Active Substance: PREDNISONE
     Dosage: 10 MG, 1X/DAY
  4. OXYGEN. [Concomitant]
     Active Substance: OXYGEN
  5. REVATIO [Suspect]
     Active Substance: SILDENAFIL CITRATE
     Indication: RIGHT VENTRICULAR FAILURE
  6. REVATIO [Suspect]
     Active Substance: SILDENAFIL CITRATE
     Indication: PULMONARY HYPERTENSION
     Dosage: 20 MG, 3X/DAY
     Route: 048
     Dates: start: 201204
  7. DELTASONE [Concomitant]
     Active Substance: PREDNISONE
     Dosage: 20 MG, 1X/DAY (FOR ONE WEEK)
  8. ASPIRIN. [Concomitant]
     Active Substance: ASPIRIN
     Dosage: 325 MG, 1X/DAY
     Route: 048
     Dates: start: 2000
  9. DELTASONE [Concomitant]
     Active Substance: PREDNISONE
     Dosage: UNK
     Dates: start: 201512
  10. VELETRI [Concomitant]
     Active Substance: EPOPROSTENOL
     Dosage: 17NG/KG/MIN (PUMP RATE: 50 ML PER 24 HOURS)
     Route: 042
     Dates: start: 201204

REACTIONS (1)
  - Catheter site infection [Recovered/Resolved]

NARRATIVE: CASE EVENT DATE: 201204
